FAERS Safety Report 9098077 (Version 1)
Quarter: 2013Q1

REPORT INFORMATION
  Report Type: Spontaneous
  Country: CA (occurrence: CA)
  Receive Date: 20130213
  Receipt Date: 20130213
  Transmission Date: 20140127
  Serious: Yes (Death, Hospitalization)
  Sender: FDA-Public Use
  Company Number: PHHY2012CA058398

PATIENT
  Sex: Male

DRUGS (2)
  1. SANDOSTATIN LAR [Suspect]
     Indication: CARCINOID SYNDROME
     Dosage: 20 MG, EVERY 4 WEEKS
     Route: 030
     Dates: start: 20120614
  2. SANDOSTATIN LAR [Suspect]
     Dosage: 20 MG, EVERY 3 WEEKS
     Route: 030

REACTIONS (2)
  - Death [Fatal]
  - Abdominal pain [Unknown]
